FAERS Safety Report 5579412-9 (Version None)
Quarter: 2008Q1

REPORT INFORMATION
  Report Type: 
  Country: None (occurrence: None)
  Receive Date: 20080102
  Receipt Date: 20071227
  Transmission Date: 20080703
  Serious: Yes (Death, Life-Threatening)
  Sender: FDA-Public Use
  Company Number: JP-ASTRAZENECA-2007AP08030

PATIENT
  Age: 80 Year
  Sex: Male

DRUGS (8)
  1. OMEPRAL [Suspect]
     Route: 048
     Dates: start: 20071120, end: 20071210
  2. HYPEN [Suspect]
     Route: 048
     Dates: start: 20071122, end: 20071210
  3. LORCAM [Concomitant]
     Dosage: DOSE UNKNOWN
     Route: 048
     Dates: start: 20071115, end: 20071122
  4. MUCOSTA [Concomitant]
     Dosage: DOSE UNKNOWN
     Route: 048
     Dates: start: 20071115, end: 20071210
  5. ENALAPRIL MALEATE [Concomitant]
     Route: 048
  6. CONIEL [Concomitant]
     Route: 048
  7. SIMVASTATIN [Concomitant]
     Route: 048
  8. POLLAKISU [Concomitant]
     Route: 048

REACTIONS (1)
  - STEVENS-JOHNSON SYNDROME [None]
